FAERS Safety Report 13243829 (Version 4)
Quarter: 2025Q2

REPORT INFORMATION
  Report Type: Spontaneous
  Country: NL (occurrence: NL)
  Receive Date: 20170216
  Receipt Date: 20250626
  Transmission Date: 20250716
  Serious: Yes (Death, Hospitalization, Other)
  Sender: SANOFI AVENTIS
  Company Number: NL-GENZYME-THYM-1001777

PATIENT
  Age: 9 Year
  Sex: Male

DRUGS (24)
  1. ANTI-THYMOCYTE GLOBULIN (RABBIT) NOS [Suspect]
     Active Substance: LAPINE T-LYMPHOCYTE IMMUNE GLOBULIN
     Indication: Bone marrow conditioning regimen
  2. FLUDARABINE PHOSPHATE [Suspect]
     Active Substance: FLUDARABINE PHOSPHATE
     Indication: Bone marrow conditioning regimen
  3. FLUDARABINE PHOSPHATE [Suspect]
     Active Substance: FLUDARABINE PHOSPHATE
     Indication: Chronic hepatic failure
  4. CYCLOPHOSPHAMIDE [Suspect]
     Active Substance: CYCLOPHOSPHAMIDE
     Indication: Bone marrow conditioning regimen
  5. CYCLOPHOSPHAMIDE [Suspect]
     Active Substance: CYCLOPHOSPHAMIDE
     Indication: Chronic hepatic failure
  6. ALEMTUZUMAB [Suspect]
     Active Substance: ALEMTUZUMAB
     Indication: Bone marrow conditioning regimen
  7. PREDNISONE [Suspect]
     Active Substance: PREDNISONE
     Indication: Chronic hepatic failure
     Dosage: 0.3 MG/KG, QD
  8. PREDNISONE [Suspect]
     Active Substance: PREDNISONE
     Indication: Prophylaxis against transplant rejection
  9. TREOSULFAN [Suspect]
     Active Substance: TREOSULFAN
     Indication: Chronic hepatic failure
  10. MELPHALAN [Suspect]
     Active Substance: MELPHALAN
     Indication: Chronic hepatic failure
  11. TACROLIMUS [Suspect]
     Active Substance: TACROLIMUS
     Indication: Chronic hepatic failure
     Route: 065
  12. BASILIXIMAB [Suspect]
     Active Substance: BASILIXIMAB
     Indication: Chronic hepatic failure
  13. MYCOPHENOLATE MOFETIL [Concomitant]
     Active Substance: MYCOPHENOLATE MOFETIL
     Indication: Prophylaxis against transplant rejection
  14. MYCOPHENOLATE MOFETIL [Concomitant]
     Active Substance: MYCOPHENOLATE MOFETIL
     Indication: Chronic hepatic failure
  15. DEFIBROTIDE [Concomitant]
     Active Substance: DEFIBROTIDE (BOVINE)
     Indication: Prophylaxis
  16. AMPHOTERICIN B [Concomitant]
     Active Substance: AMPHOTERICIN B
     Indication: Infection prophylaxis
  17. POLYMYXIN B [Concomitant]
     Active Substance: POLYMYXIN B
     Indication: Infection prophylaxis
  18. NEOMYCIN SULFATE [Concomitant]
     Active Substance: NEOMYCIN SULFATE
     Indication: Infection prophylaxis
  19. PENTAMIDINE [Concomitant]
     Active Substance: PENTAMIDINE
     Indication: Infection prophylaxis
     Route: 055
  20. IMMUNE GLOBULIN NOS [Concomitant]
     Active Substance: IMMUNE GLOBULIN NOS
     Indication: Infection prophylaxis
     Route: 042
  21. URSODIOL [Concomitant]
     Active Substance: URSODIOL
  22. CHENODIOL [Concomitant]
     Active Substance: CHENODIOL
  23. VALACYCLOVIR HYDROCHLORIDE [Concomitant]
     Active Substance: VALACYCLOVIR HYDROCHLORIDE
  24. HEMATIN [Concomitant]
     Active Substance: HEMATIN

REACTIONS (20)
  - Multiple organ dysfunction syndrome [Fatal]
  - Respiratory failure [Fatal]
  - Optic neuritis [Fatal]
  - Retinitis [Fatal]
  - Herpes zoster disseminated [Fatal]
  - Varicella zoster virus infection [Fatal]
  - Herpes zoster reactivation [Fatal]
  - Renal failure [Unknown]
  - Vanishing bile duct syndrome [Recovering/Resolving]
  - Staphylococcal scalded skin syndrome [Unknown]
  - Ear infection [Unknown]
  - Staphylococcal skin infection [Unknown]
  - Anaphylactic shock [Recovered/Resolved]
  - Gastroenteritis viral [Unknown]
  - Dehydration [Unknown]
  - Adenovirus infection [Unknown]
  - Human bocavirus infection [Unknown]
  - Lymphopenia [Unknown]
  - Visual impairment [Unknown]
  - Off label use [Unknown]
